FAERS Safety Report 9847440 (Version 1)
Quarter: 2014Q1

REPORT INFORMATION
  Report Type: Spontaneous
  Country: US (occurrence: US)
  Receive Date: 20140127
  Receipt Date: 20140127
  Transmission Date: 20141002
  Serious: No
  Sender: FDA-Public Use
  Company Number: US-SANOFI-AVENTIS-2013SA072994

PATIENT
  Age: 50 Year
  Sex: Male
  Weight: 78 kg

DRUGS (5)
  1. KETEK [Suspect]
     Indication: LYME DISEASE
     Dosage: PRODUCT START DATE -2004
     Route: 065
  2. AUGMENTIN [Concomitant]
  3. OMNICEF [Concomitant]
  4. OXYCONTIN [Concomitant]
  5. ANTIBIOTICS [Concomitant]

REACTIONS (3)
  - Dizziness [Not Recovered/Not Resolved]
  - Insomnia [Not Recovered/Not Resolved]
  - Drug dose omission [Unknown]
